FAERS Safety Report 25998981 (Version 1)
Quarter: 2025Q4

REPORT INFORMATION
  Report Type: Other
  Country: GB (occurrence: GB)
  Receive Date: 20251105
  Receipt Date: 20251105
  Transmission Date: 20260118
  Serious: Yes (Disabling)
  Sender: GLENMARK
  Company Number: None

PATIENT
  Sex: Female

DRUGS (1)
  1. COLESEVELAM [Suspect]
     Active Substance: COLESEVELAM
     Indication: Adverse drug reaction
     Dosage: UNK, TID, 2 TDS
     Route: 065
     Dates: start: 20241118

REACTIONS (5)
  - Gastrointestinal pain [Not Recovered/Not Resolved]
  - Abdominal pain [Not Recovered/Not Resolved]
  - Dyspepsia [Not Recovered/Not Resolved]
  - Abnormal faeces [Unknown]
  - Headache [Unknown]

NARRATIVE: CASE EVENT DATE: 20241118
